FAERS Safety Report 7900677-X (Version None)
Quarter: 2011Q4

REPORT INFORMATION
  Report Type: 
  Country: None (occurrence: None)
  Receive Date: 20111108
  Receipt Date: 20111107
  Transmission Date: 20120403
  Serious: Yes (Other)
  Sender: FDA-Public Use
  Company Number: US-PFIZER INC-2011272069

PATIENT
  Sex: Female
  Weight: 79.365 kg

DRUGS (3)
  1. CHANTIX [Suspect]
     Indication: SMOKING CESSATION THERAPY
     Dosage: 0.5 MG, 2X/DAY
     Route: 048
     Dates: start: 20111002, end: 20110101
  2. CHANTIX [Suspect]
     Dosage: 1 MG, 1X/DAY
     Route: 048
     Dates: start: 20111101
  3. METOPROLOL [Concomitant]
     Indication: ARRHYTHMIA
     Dosage: 25 MG, DAILY

REACTIONS (1)
  - BREAST DISCHARGE [None]
